FAERS Safety Report 6355159-6 (Version None)
Quarter: 2009Q3

REPORT INFORMATION
  Report Type: 
  Country: None (occurrence: None)
  Receive Date: 20090909
  Receipt Date: 20090826
  Transmission Date: 20100115
  Serious: Yes (Hospitalization)
  Sender: FDA-Public Use
  Company Number: JHP200900241

PATIENT
  Age: 63 Year
  Sex: Male
  Weight: 85 kg

DRUGS (2)
  1. DANTRIUM [Suspect]
     Indication: CEREBROVASCULAR ACCIDENT
     Dosage: 50 MG, BID (2 DOSE FORMS IN MORNING AND 2 IN THE EVENING), ORAL
     Route: 048
  2. VERAPAMIL [Concomitant]

REACTIONS (2)
  - DRUG INTERACTION [None]
  - PULMONARY EMBOLISM [None]
